FAERS Safety Report 15932416 (Version 1)
Quarter: 2019Q1

REPORT INFORMATION
  Report Type: Spontaneous
  Country: NL (occurrence: NL)
  Receive Date: 20190207
  Receipt Date: 20190207
  Transmission Date: 20190417
  Serious: Yes (Other)
  Sender: FDA-Public Use
  Company Number: NL-SA-2019SA028935

PATIENT
  Age: 62 Year
  Sex: Male
  Weight: 75 kg

DRUGS (1)
  1. RIFINAH [Suspect]
     Active Substance: ISONIAZID\RIFAMPIN
     Indication: TUBERCULOSIS
     Route: 048
     Dates: start: 20170117, end: 20170507

REACTIONS (4)
  - Polymyalgia rheumatica [Recovering/Resolving]
  - Chest pain [Recovering/Resolving]
  - Constipation [Recovered/Resolved]
  - Neck pain [Recovering/Resolving]

NARRATIVE: CASE EVENT DATE: 20170119
